FAERS Safety Report 8548695-5 (Version None)
Quarter: 2012Q3

REPORT INFORMATION
  Report Type: 
  Country: None (occurrence: None)
  Receive Date: 20120730
  Receipt Date: 20120720
  Transmission Date: 20120928
  Serious: Yes (Hospitalization, Disabling)
  Sender: FDA-Public Use
  Company Number: PHHY2012CA051579

PATIENT
  Sex: Female

DRUGS (1)
  1. EXJADE [Suspect]
     Indication: SICKLE CELL ANAEMIA
     Route: 048

REACTIONS (4)
  - GENERALISED OEDEMA [None]
  - DISEASE COMPLICATION [None]
  - MALAISE [None]
  - DRUG INTOLERANCE [None]
